FAERS Safety Report 26000373 (Version 1)
Quarter: 2025Q4

REPORT INFORMATION
  Report Type: Spontaneous
  Country: US (occurrence: US)
  Receive Date: 20251105
  Receipt Date: 20251105
  Transmission Date: 20260117
  Serious: Yes (Hospitalization, Other)
  Sender: APOTEX
  Company Number: US-APOTEX-2025AP032002

PATIENT
  Age: 5 Year
  Sex: Female

DRUGS (2)
  1. ACETAMINOPHEN [Suspect]
     Active Substance: ACETAMINOPHEN
     Indication: Product used for unknown indication
     Dosage: UNK, UNKNOWN QUANTITY OF ADULT-FORMULATION ACETAMINOPHEN OF UNSPECIFIED STRENGTH
     Route: 048
  2. SAFFLOWER OIL [Suspect]
     Active Substance: SAFFLOWER OIL
     Indication: Product used for unknown indication
     Dosage: UNK (INTENDED FOR TOPICAL USE)
     Route: 048

REACTIONS (20)
  - Acute hepatic failure [Recovering/Resolving]
  - Encephalopathy [Recovering/Resolving]
  - Brain oedema [Recovering/Resolving]
  - Intracranial pressure increased [Recovering/Resolving]
  - Hepatic artery thrombosis [Recovering/Resolving]
  - Hyperbilirubinaemia [Recovering/Resolving]
  - Septic shock [Recovering/Resolving]
  - Enterococcal bacteraemia [Recovering/Resolving]
  - Vomiting [Recovering/Resolving]
  - Chills [Recovering/Resolving]
  - Gastrointestinal disorder [Recovering/Resolving]
  - Jaundice [Recovering/Resolving]
  - Hypoglycaemia [Recovering/Resolving]
  - Coagulopathy [Recovering/Resolving]
  - Condition aggravated [Recovering/Resolving]
  - Hyperammonaemia [Recovering/Resolving]
  - Hypertransaminasaemia [Recovering/Resolving]
  - Cytomegalovirus infection [Recovering/Resolving]
  - Accidental exposure to product by child [Unknown]
  - Overdose [Unknown]
